FAERS Safety Report 14141401 (Version 4)
Quarter: 2018Q4

REPORT INFORMATION
  Report Type: Spontaneous
  Country: JP (occurrence: JP)
  Receive Date: 20171030
  Receipt Date: 20181130
  Transmission Date: 20190204
  Serious: Yes (Other)
  Sender: FDA-Public Use
  Company Number: JP-ACTELION-A-CH2017-161390

PATIENT
  Age: 68 Year
  Sex: Female

DRUGS (12)
  1. REVATIO [Suspect]
     Active Substance: SILDENAFIL CITRATE
     Indication: PULMONARY ARTERIAL HYPERTENSION
     Dosage: 20 MG, TID
     Route: 048
     Dates: start: 20170124, end: 20171019
  2. WARFARIN [Concomitant]
     Active Substance: WARFARIN
  3. DIART [Concomitant]
     Active Substance: AZOSEMIDE
  4. UPTRAVI [Suspect]
     Active Substance: SELEXIPAG
     Dosage: 1.6 MG, BID
     Route: 048
  5. OPSUMIT [Suspect]
     Active Substance: MACITENTAN
     Indication: PULMONARY ARTERIAL HYPERTENSION
     Dosage: 10 MG, QD
     Route: 048
     Dates: start: 20170111
  6. OPSUMIT [Suspect]
     Active Substance: MACITENTAN
     Dosage: 10 MG, QD
     Route: 048
     Dates: start: 20160810
  7. ADCIRCA [Concomitant]
     Active Substance: TADALAFIL
  8. UPTRAVI [Suspect]
     Active Substance: SELEXIPAG
     Indication: PULMONARY ARTERIAL HYPERTENSION
     Dosage: 0.8 MG, BID
     Route: 048
     Dates: start: 20170224
  9. MAINTATE [Concomitant]
     Active Substance: BISOPROLOL FUMARATE
  10. DIGOSIN [Concomitant]
     Active Substance: DIGOXIN
  11. TAKECAB [Concomitant]
     Active Substance: VONOPRAZAN FUMURATE
  12. OXYGEN. [Concomitant]
     Active Substance: OXYGEN

REACTIONS (2)
  - Platelet count decreased [Not Recovered/Not Resolved]
  - White blood cell count decreased [Not Recovered/Not Resolved]

NARRATIVE: CASE EVENT DATE: 20160916
